FAERS Safety Report 11760352 (Version 1)
Quarter: 2015Q4

REPORT INFORMATION
  Report Type: Spontaneous
  Country: CA (occurrence: CA)
  Receive Date: 20151120
  Receipt Date: 20151120
  Transmission Date: 20160304
  Serious: Yes (Disabling)
  Sender: FDA-Public Use
  Company Number: CA-TEVA-611077ACC

PATIENT
  Age: 85 Year
  Sex: Male

DRUGS (8)
  1. CLOPIDOGREL [Suspect]
     Active Substance: CLOPIDOGREL BISULFATE
     Indication: CORONARY ARTERY DISEASE
     Dosage: 75 MILLIGRAM DAILY;
     Route: 065
  2. CALCIUM [Concomitant]
     Active Substance: CALCIUM
  3. HYDROCORTISONE. [Concomitant]
     Active Substance: HYDROCORTISONE
  4. MAVIK [Concomitant]
     Active Substance: TRANDOLAPRIL
  5. UREMOL HC [Concomitant]
  6. CRESTOR [Concomitant]
     Active Substance: ROSUVASTATIN CALCIUM
  7. QUININE SULFATE. [Concomitant]
     Active Substance: QUININE SULFATE
  8. VITAMIN D [Concomitant]
     Active Substance: CHOLECALCIFEROL

REACTIONS (1)
  - Tinnitus [Recovered/Resolved]
